FAERS Safety Report 8510135-X (Version None)
Quarter: 2012Q3

REPORT INFORMATION
  Report Type: 
  Country: None (occurrence: None)
  Receive Date: 20120713
  Receipt Date: 20120712
  Transmission Date: 20120928
  Serious: Yes (Life-Threatening)
  Sender: FDA-Public Use
  Company Number: DE-B.I. PHARMACEUTICALS,INC./RIDGEFIELD-2012-DE-01620DE

PATIENT
  Sex: Female
  Weight: 80 kg

DRUGS (6)
  1. ARCOXIA [Concomitant]
     Dosage: 90 NR
  2. TORSEMIDE [Concomitant]
     Dosage: 40 NR
  3. PRADAXA [Suspect]
     Indication: ATRIAL FIBRILLATION
     Dosage: 220 MG
  4. PRADAXA [Suspect]
     Dosage: 110 MG
  5. RAMIPRIL [Concomitant]
     Dosage: 5 NR
  6. METOPROLOL TARTRATE [Concomitant]

REACTIONS (1)
  - CEREBROVASCULAR ACCIDENT [None]
